FAERS Safety Report 9618888 (Version 3)
Quarter: 2013Q4

REPORT INFORMATION
  Report Type: Spontaneous
  Country: JP (occurrence: JP)
  Receive Date: 20131014
  Receipt Date: 20131024
  Transmission Date: 20140711
  Serious: Yes (Other)
  Sender: FDA-Public Use
  Company Number: JP-ASTELLAS-2013JP010160

PATIENT
  Age: 37 Year
  Sex: Female

DRUGS (5)
  1. PROGRAF [Suspect]
     Indication: LIVER TRANSPLANT
     Dosage: UNK
     Route: 041
     Dates: start: 20130912, end: 20130920
  2. PROGRAF [Suspect]
     Indication: LIVER TRANSPLANT
     Dosage: UNK
     Route: 048
     Dates: start: 20130921, end: 201309
  3. PROGRAF [Suspect]
     Indication: LIVER TRANSPLANT
     Dosage: UNK
     Route: 048
     Dates: start: 201309
  4. BARACLUDE [Concomitant]
     Dosage: UNK
     Route: 048
  5. HEBSBULIN [Concomitant]
     Dosage: UNK
     Route: 065

REACTIONS (3)
  - Pain of skin [Recovering/Resolving]
  - Hot flush [Recovering/Resolving]
  - Weight increased [Unknown]
